FAERS Safety Report 7591103-1 (Version None)
Quarter: 2011Q3

REPORT INFORMATION
  Report Type: 
  Country: None (occurrence: None)
  Receive Date: 20110705
  Receipt Date: 20110624
  Transmission Date: 20111222
  Serious: Yes (Hospitalization)
  Sender: FDA-Public Use
  Company Number: FR-ASTRAZENECA-2010SE58490

PATIENT
  Age: 72 Year
  Sex: Male

DRUGS (7)
  1. NEBIVOLOL HCL [Concomitant]
  2. RASILEZ [Concomitant]
  3. KEPPRA [Concomitant]
     Indication: TEMPORAL LOBE EPILEPSY
  4. JANUVIA [Concomitant]
  5. TEGRETOL [Concomitant]
  6. ZOLADEX [Suspect]
     Route: 058
     Dates: start: 20080901, end: 20100401
  7. ALDACTONE [Concomitant]

REACTIONS (3)
  - METABOLIC SYNDROME [None]
  - CEREBELLAR SYNDROME [None]
  - MYOPATHY [None]
